FAERS Safety Report 9543317 (Version 2)
Quarter: 2013Q3

REPORT INFORMATION
  Report Type: Spontaneous
  Country: BR (occurrence: BR)
  Receive Date: 20130923
  Receipt Date: 20130923
  Transmission Date: 20140515
  Serious: Yes (Other)
  Sender: FDA-Public Use
  Company Number: BR-009507513-2011SP039601

PATIENT
  Age: 30 Year
  Sex: Female
  Weight: 64 kg

DRUGS (1)
  1. GRACIAL [Suspect]
     Indication: CONTRACEPTION
     Dosage: UNK UNK, UNKNOWN
     Route: 048
     Dates: start: 2002

REACTIONS (4)
  - Ocular vasculitis [Recovered/Resolved]
  - Hypersomnia [Recovered/Resolved]
  - Candida infection [Recovering/Resolving]
  - Drug administration error [Unknown]
